FAERS Safety Report 15821362 (Version 1)
Quarter: 2019Q1

REPORT INFORMATION
  Report Type: Spontaneous
  Country: IT (occurrence: IT)
  Receive Date: 20190114
  Receipt Date: 20190114
  Transmission Date: 20190417
  Serious: Yes (Other)
  Sender: FDA-Public Use
  Company Number: IT-SA-2019SA005574

PATIENT
  Age: 47 Year
  Sex: Female
  Weight: 60 kg

DRUGS (6)
  1. FLUOROURACIL. [Suspect]
     Active Substance: FLUOROURACIL
     Indication: ADENOCARCINOMA GASTRIC
     Dosage: 500 MG, QCY
     Route: 040
     Dates: start: 20180725, end: 20180725
  2. DOXIFLURIDINE [Suspect]
     Active Substance: DOXIFLURIDINE
     Dosage: 500 MG, QCY
     Route: 041
     Dates: start: 20180914, end: 20180914
  3. FLUOROURACIL. [Suspect]
     Active Substance: FLUOROURACIL
     Dosage: 500 MG, QCY
     Route: 040
     Dates: start: 20180914, end: 20180914
  4. OXALIPLATIN. [Suspect]
     Active Substance: OXALIPLATIN
     Dosage: 200 MG, QCY
     Route: 042
     Dates: start: 20180914, end: 20180914
  5. DOXIFLURIDINE [Suspect]
     Active Substance: DOXIFLURIDINE
     Indication: ADENOCARCINOMA GASTRIC
     Dosage: 500 MG, QCY
     Route: 041
     Dates: start: 20180725, end: 20180725
  6. OXALIPLATIN. [Suspect]
     Active Substance: OXALIPLATIN
     Indication: ADENOCARCINOMA GASTRIC
     Dosage: 200 MG, QCY
     Route: 042
     Dates: start: 20180725, end: 20180725

REACTIONS (1)
  - Blood iron decreased [Recovered/Resolved]

NARRATIVE: CASE EVENT DATE: 20180926
